FAERS Safety Report 5658869-9 (Version None)
Quarter: 2008Q1

REPORT INFORMATION
  Report Type: 
  Country: None (occurrence: None)
  Receive Date: 20080310
  Receipt Date: 20070501
  Transmission Date: 20080703
  Serious: No
  Sender: FDA-Public Use
  Company Number: US-BAYER-200711356BCC

PATIENT
  Age: 91 Year
  Sex: Female
  Weight: 50 kg

DRUGS (5)
  1. ALEVE [Suspect]
     Indication: ARTHRALGIA
     Dosage: UNIT DOSE: 220 MG
     Route: 048
     Dates: start: 20070430
  2. WATER PILL [Concomitant]
  3. POTASSIUM CHLORIDE [Concomitant]
  4. FEMARA [Concomitant]
  5. SIMVASTATIN [Concomitant]

REACTIONS (1)
  - ARTHRALGIA [None]
